FAERS Safety Report 9302968 (Version 1)
Quarter: 2013Q2

REPORT INFORMATION
  Report Type: Spontaneous
  Country: US (occurrence: US)
  Receive Date: 20130522
  Receipt Date: 20130522
  Transmission Date: 20140414
  Serious: Yes (Other)
  Sender: FDA-Public Use
  Company Number: US-BRISTOL-MYERS SQUIBB COMPANY-18904557

PATIENT
  Age: 55 Year
  Sex: Male

DRUGS (12)
  1. ABATACEPT SUBQ INJECTION 125MG/ML [Suspect]
     Indication: RHEUMATOID ARTHRITIS
     Route: 058
  2. CIALIS [Concomitant]
  3. PREDNISONE [Concomitant]
  4. LEFLUNOMIDE [Concomitant]
  5. GABAPENTIN [Concomitant]
  6. RISPERIDONE [Concomitant]
     Dosage: 1DF:1MG/ML
  7. RANITIDINE [Concomitant]
  8. FLOMAX [Concomitant]
  9. OYSTERCAL-D [Concomitant]
  10. NAPROXEN [Concomitant]
  11. OXYCODONE [Concomitant]
  12. FOLIC ACID [Concomitant]
     Dosage: TABS

REACTIONS (1)
  - Back disorder [Unknown]
